FAERS Safety Report 8020275-X (Version None)
Quarter: 2012Q1

REPORT INFORMATION
  Report Type: 
  Country: None (occurrence: None)
  Receive Date: 20120103
  Receipt Date: 20111219
  Transmission Date: 20120608
  Serious: Yes (Congenital Anomaly)
  Sender: FDA-Public Use
  Company Number: HU-ROCHE-1026834

PATIENT

DRUGS (4)
  1. PHENYTOIN [Suspect]
     Indication: EPILEPSY
     Route: 064
  2. CLONAZEPAM [Suspect]
     Indication: EPILEPSY
     Route: 064
  3. PHENACEMIDE [Suspect]
     Indication: EPILEPSY
     Route: 064
  4. TRIMETHADIONE [Suspect]
     Indication: EPILEPSY
     Route: 064

REACTIONS (7)
  - CLEFT PALATE [None]
  - HYPOSPADIAS [None]
  - CLEFT LIP [None]
  - TRACHEO-OESOPHAGEAL FISTULA [None]
  - MATERNAL EXPOSURE TIMING UNSPECIFIED [None]
  - OESOPHAGEAL ATRESIA [None]
  - VENTRICULAR SEPTAL DEFECT [None]
